FAERS Safety Report 10489891 (Version 1)
Quarter: 2014Q4

REPORT INFORMATION
  Report Type: Spontaneous
  Country: US (occurrence: US)
  Receive Date: 20141002
  Receipt Date: 20141002
  Transmission Date: 20150528
  Serious: Yes (Other)
  Sender: FDA-Public Use
  Company Number: US-BAYER-2014-145430

PATIENT
  Age: 83 Year
  Sex: Female

DRUGS (6)
  1. BAYER LOW DOSE [Suspect]
     Active Substance: ASPIRIN
     Indication: HEART RATE IRREGULAR
     Dosage: 2 DF, QD
     Route: 048
     Dates: start: 2013
  2. VITAMINS NOS [Concomitant]
     Active Substance: VITAMINS
  3. BAYER LOW DOSE [Suspect]
     Active Substance: ASPIRIN
     Indication: HEART RATE IRREGULAR
     Dosage: 4 DF, QD
     Route: 048
     Dates: start: 2013, end: 2013
  4. BAYER LOW DOSE [Suspect]
     Active Substance: ASPIRIN
     Indication: HEART RATE IRREGULAR
     Dosage: 2 DF, QD
     Route: 048
     Dates: start: 201204, end: 2013
  5. BAYER GENUINE ASPIRIN [Suspect]
     Active Substance: ASPIRIN
     Indication: HEART RATE IRREGULAR
     Dosage: 1 DF, QD
     Route: 048
     Dates: start: 201203, end: 201204
  6. BAYER LOW DOSE [Suspect]
     Active Substance: ASPIRIN
     Indication: HEART RATE IRREGULAR
     Dosage: 1 DF, QD
     Route: 048
     Dates: start: 201204, end: 201204

REACTIONS (6)
  - Nausea [Recovered/Resolved]
  - Epistaxis [Recovered/Resolved]
  - Product use issue [None]
  - Intentional product misuse [None]
  - Haemoptysis [Recovered/Resolved]
  - Medication error [None]

NARRATIVE: CASE EVENT DATE: 201203
